FAERS Safety Report 9285359 (Version 3)
Quarter: 2013Q2

REPORT INFORMATION
  Report Type: Spontaneous
  Country: DK (occurrence: DK)
  Receive Date: 20130513
  Receipt Date: 20130530
  Transmission Date: 20140414
  Serious: Yes (Other)
  Sender: FDA-Public Use
  Company Number: DK-ASTRAZENECA-2013SE31401

PATIENT
  Age: 63 Year
  Sex: Female

DRUGS (5)
  1. FASLODEX [Suspect]
     Indication: BREAST CANCER RECURRENT
     Dosage: 250 MG/5 ML
     Route: 030
  2. SENDOXAN [Suspect]
     Indication: BREAST CANCER
     Route: 065
     Dates: start: 2009
  3. HERCEPTIN [Suspect]
     Indication: BREAST CANCER
     Route: 042
     Dates: start: 2009, end: 201303
  4. HERCEPTIN [Suspect]
     Indication: BREAST CANCER
     Route: 042
  5. NAVELBINE [Suspect]
     Indication: BREAST CANCER
     Route: 065
     Dates: start: 2009

REACTIONS (8)
  - Visual field defect [Not Recovered/Not Resolved]
  - Glaucoma [Unknown]
  - Photopsia [Unknown]
  - Ocular hypertension [Recovering/Resolving]
  - Visual impairment [Not Recovered/Not Resolved]
  - Sensory disturbance [Unknown]
  - Stress [Unknown]
  - Vitreous detachment [Unknown]
